FAERS Safety Report 23657519 (Version 1)
Quarter: 2024Q1

REPORT INFORMATION
  Report Type: Spontaneous
  Country: US (occurrence: US)
  Receive Date: 20240321
  Receipt Date: 20240321
  Transmission Date: 20240410
  Serious: No
  Sender: FDA-Public Use
  Company Number: US-PFIZER INC-202400037512

PATIENT
  Age: 7 Year
  Sex: Male

DRUGS (2)
  1. OXBRYTA [Suspect]
     Active Substance: VOXELOTOR
     Dosage: 900 MG (PREPARE 3 TABLETS ORALLY), ONCE DAILY
     Route: 048
     Dates: start: 20230214
  2. OXBRYTA [Suspect]
     Active Substance: VOXELOTOR
     Dosage: 300 MG., 3 TABLETS FOR ORAL SUSPENSION, ONCE DAILY, ORALLY
     Route: 048
     Dates: start: 20230214

REACTIONS (2)
  - Ocular icterus [Recovered/Resolved]
  - Product dose omission issue [Unknown]
